FAERS Safety Report 7051839-8 (Version None)
Quarter: 2010Q4

REPORT INFORMATION
  Report Type: 
  Country: None (occurrence: None)
  Receive Date: 20101019
  Receipt Date: 20101012
  Transmission Date: 20110411
  Serious: Yes (Other)
  Sender: FDA-Public Use
  Company Number: US-PURDUE-USA-2010-0048729

PATIENT
  Sex: Female

DRUGS (1)
  1. OXYCONTIN [Suspect]
     Indication: PAIN
     Dosage: 40 MG, TID

REACTIONS (6)
  - DRUG INEFFECTIVE [None]
  - HEADACHE [None]
  - INSOMNIA [None]
  - MEDICATION RESIDUE [None]
  - NAUSEA [None]
  - SUICIDAL IDEATION [None]
